FAERS Safety Report 9239521 (Version 2)
Quarter: 2013Q2

REPORT INFORMATION
  Report Type: Spontaneous
  Country: CA (occurrence: CA)
  Receive Date: 20130418
  Receipt Date: 20130428
  Transmission Date: 20140414
  Serious: Yes (Other)
  Sender: FDA-Public Use
  Company Number: CA-AMGEN-CANSP2013025814

PATIENT
  Age: 68 Year
  Sex: Female

DRUGS (6)
  1. ENBREL [Suspect]
     Indication: RHEUMATOID ARTHRITIS
     Dosage: 50 MG, UNK
     Dates: start: 20030406, end: 20130206
  2. PREDNISONE [Concomitant]
     Dosage: 10 MG, UNK
  3. PLAQUENIL                          /00072602/ [Concomitant]
     Dosage: 200 MG, UNK (2 TABLETS)
  4. CELEBREX [Concomitant]
     Dosage: 100 MG, UNK (1 TABLET)
  5. METHOTREXATE [Concomitant]
     Dosage: 10 MG, QWK
  6. PROPRANOLOL [Concomitant]
     Dosage: 10 MG, UNK

REACTIONS (1)
  - B-cell lymphoma [Not Recovered/Not Resolved]
